FAERS Safety Report 23311054 (Version 1)
Quarter: 2023Q4

REPORT INFORMATION
  Report Type: Report from Study
  Country: CO (occurrence: CO)
  Receive Date: 20231218
  Receipt Date: 20231218
  Transmission Date: 20240110
  Serious: Yes (Other)
  Sender: FDA-Public Use
  Company Number: CO-JNJFOC-20231231447

PATIENT
  Age: 33 Year
  Sex: Female
  Weight: 58 kg

DRUGS (1)
  1. SIMPONI [Suspect]
     Active Substance: GOLIMUMAB
     Indication: Product used for unknown indication
     Dosage: LAST DRUG APPLICATION: 29-SEP-2023?50MG/0.5ML
     Route: 058
     Dates: start: 20220802, end: 20231205

REACTIONS (1)
  - Spinal cord oedema [Not Recovered/Not Resolved]

NARRATIVE: CASE EVENT DATE: 20231205
